FAERS Safety Report 6796350-4 (Version None)
Quarter: 2010Q2

REPORT INFORMATION
  Report Type: 
  Country: None (occurrence: None)
  Receive Date: 20100622
  Receipt Date: 20100617
  Transmission Date: 20101027
  Serious: Yes (Life-Threatening, Hospitalization)
  Sender: FDA-Public Use
  Company Number: 2010AP001194

PATIENT
  Age: 90 Year
  Sex: Female

DRUGS (4)
  1. ASPIRIN [Suspect]
     Dosage: 75MG, PO; QD;
     Route: 048
     Dates: end: 20100517
  2. ALENDRONATE SODIUM [Suspect]
     Dosage: 70MG PO;QW
     Route: 048
     Dates: end: 20100517
  3. AMLODIPINE [Concomitant]
  4. AMOXICILLIN [Concomitant]

REACTIONS (2)
  - HAEMOGLOBIN DECREASED [None]
  - OESOPHAGITIS [None]
